FAERS Safety Report 8525010-4 (Version None)
Quarter: 2012Q3

REPORT INFORMATION
  Report Type: 
  Country: None (occurrence: None)
  Receive Date: 20120720
  Receipt Date: 20120717
  Transmission Date: 20120928
  Serious: Yes (Other)
  Sender: FDA-Public Use
  Company Number: US-ROCHE-1058449

PATIENT
  Sex: Male

DRUGS (1)
  1. XELODA [Suspect]
     Indication: PRODUCT USED FOR UNKNOWN INDICATION

REACTIONS (6)
  - NEPHROLITHIASIS [None]
  - NEOPLASM [None]
  - CONSTIPATION [None]
  - DYSPEPSIA [None]
  - CHEST PAIN [None]
  - ASTHENIA [None]
